FAERS Safety Report 6162796-0 (Version None)
Quarter: 2009Q2

REPORT INFORMATION
  Report Type: 
  Country: None (occurrence: None)
  Receive Date: 20090421
  Receipt Date: 20080808
  Transmission Date: 20091009
  Serious: No
  Sender: FDA-Public Use
  Company Number: US-ASTRAZENECA-2008UW16406

PATIENT
  Sex: Female

DRUGS (5)
  1. TOPROL-XL [Suspect]
     Route: 048
  2. ALBUTEROL [Concomitant]
  3. TAGAMET [Concomitant]
  4. XANAX [Concomitant]
  5. ZOMIG [Concomitant]
     Dosage: PATIENT UNSURE OF DOSE - EITHER 2.5 MG OR 5 MG - 2 TABLETS EVERY DAY
     Route: 048

REACTIONS (1)
  - MIGRAINE [None]
